FAERS Safety Report 6177009-3 (Version None)
Quarter: 2009Q2

REPORT INFORMATION
  Report Type: 
  Country: None (occurrence: None)
  Receive Date: 20090501
  Receipt Date: 20090422
  Transmission Date: 20091009
  Serious: Yes (Other)
  Sender: FDA-Public Use
  Company Number: US-ABBOTT-09P-163-0569409-00

PATIENT
  Sex: Female
  Weight: 59.02 kg

DRUGS (15)
  1. HUMIRA [Suspect]
     Indication: RHEUMATOID ARTHRITIS
     Route: 058
     Dates: start: 20060101, end: 20080815
  2. HUMIRA [Suspect]
     Route: 058
     Dates: start: 20081001
  3. SYNTHROID [Concomitant]
     Indication: HYPOTHYROIDISM
     Route: 048
     Dates: start: 19890101
  4. ZYRTEC [Concomitant]
     Indication: HYPERSENSITIVITY
     Route: 048
  5. METHOTREXATE [Concomitant]
     Indication: RHEUMATOID ARTHRITIS
     Dosage: FORM STRENGTH:  2.5 MILLIGRAM
     Route: 048
  6. PREDNISONE [Concomitant]
     Indication: RHEUMATOID ARTHRITIS
     Route: 048
  7. ZOCOR [Concomitant]
     Indication: BLOOD CHOLESTEROL INCREASED
  8. TEMAZEPAM [Concomitant]
     Indication: INSOMNIA
  9. NEURONTIN [Concomitant]
     Indication: RHEUMATOID ARTHRITIS
     Route: 048
  10. ADVAIR HFA [Concomitant]
     Indication: ASTHMA
     Route: 048
  11. ALBUTEROL [Concomitant]
     Indication: ASTHMA
  12. FOLIC ACID [Concomitant]
     Indication: RHEUMATOID ARTHRITIS
     Route: 048
  13. RECLAST [Concomitant]
     Indication: OSTEOPOROSIS
     Route: 042
  14. FLUIDS [Concomitant]
     Indication: DRUG USE FOR UNKNOWN INDICATION
     Route: 042
     Dates: start: 20080912, end: 20080912
  15. VICODIN [Concomitant]
     Indication: PROCEDURAL PAIN
     Route: 048
     Dates: start: 20080912

REACTIONS (1)
  - CARPAL TUNNEL SYNDROME [None]
